FAERS Safety Report 18368139 (Version 2)
Quarter: 2020Q4

REPORT INFORMATION
  Report Type: Spontaneous
  Country: TR (occurrence: TR)
  Receive Date: 20201009
  Receipt Date: 20201014
  Transmission Date: 20210114
  Serious: Yes (Hospitalization, Other)
  Sender: FDA-Public Use
  Company Number: TR-TAKEDA-2020TUS041645

PATIENT
  Age: 24 Year
  Sex: Female

DRUGS (2)
  1. BRINTELLIX [Suspect]
     Active Substance: VORTIOXETINE HYDROBROMIDE
     Indication: DEPRESSION
     Dosage: 10 MILLIGRAM, QD
     Route: 065
  2. A-FERIN (CAFFEINE\CHLORPHENAMINE MALEATE\PARACETAMOL\PHENYLPROPANOLAMINE HYDROCHLORIDE) [Interacting]
     Active Substance: ACETAMINOPHEN\CAFFEINE\CHLORPHENIRAMINE\PHENYLPROPANOLAMINE
     Indication: PRODUCT USED FOR UNKNOWN INDICATION
     Dosage: UNK
     Route: 065

REACTIONS (7)
  - Muscle twitching [Unknown]
  - Gait disturbance [Unknown]
  - Speech disorder [Unknown]
  - Drug interaction [Unknown]
  - Generalised tonic-clonic seizure [Unknown]
  - Hypertension [Unknown]
  - Blood glucose increased [Unknown]
